FAERS Safety Report 17741706 (Version 1)
Quarter: 2020Q2

REPORT INFORMATION
  Report Type: Spontaneous
  Country: CA (occurrence: CA)
  Receive Date: 20200504
  Receipt Date: 20200504
  Transmission Date: 20200714
  Serious: Yes (Other)
  Sender: FDA-Public Use
  Company Number: NVSC2020CA115648

PATIENT
  Sex: Female

DRUGS (1)
  1. METHOTREXATE. [Suspect]
     Active Substance: METHOTREXATE
     Indication: RHEUMATOID ARTHRITIS
     Route: 065

REACTIONS (5)
  - Swelling face [Unknown]
  - Renal cell carcinoma [Unknown]
  - Idiopathic angioedema [Unknown]
  - Pharyngeal swelling [Unknown]
  - Urticaria [Unknown]

NARRATIVE: CASE EVENT DATE: 2011
